FAERS Safety Report 11820225 (Version 1)
Quarter: 2015Q4

REPORT INFORMATION
  Report Type: Spontaneous
  Country: GB (occurrence: GB)
  Receive Date: 20151210
  Receipt Date: 20151210
  Transmission Date: 20160305
  Serious: Yes (Other)
  Sender: FDA-Public Use
  Company Number: GB-TEVA-613566ACC

PATIENT
  Age: 47 Year
  Sex: Female
  Weight: 65 kg

DRUGS (4)
  1. CODEINE [Concomitant]
     Active Substance: CODEINE
     Indication: PAIN
     Dosage: 90 MILLIGRAM DAILY;
     Route: 048
  2. HALOPERIDOL. [Suspect]
     Active Substance: HALOPERIDOL
     Indication: ANXIETY
     Route: 048
     Dates: start: 20151107, end: 20151109
  3. VENLAFAXINE [Concomitant]
     Active Substance: VENLAFAXINE HYDROCHLORIDE
     Indication: DEPRESSION
     Dosage: 225 MILLIGRAM DAILY; 75MG IN THE MORNING AND 150MG AT LUNCH.
     Route: 048
  4. DICLOFENAC [Concomitant]
     Active Substance: DICLOFENAC
     Indication: PAIN
     Route: 054

REACTIONS (1)
  - Aggression [Recovering/Resolving]

NARRATIVE: CASE EVENT DATE: 20151107
